FAERS Safety Report 5450470-5 (Version None)
Quarter: 2007Q3

REPORT INFORMATION
  Report Type: 
  Country: None (occurrence: None)
  Receive Date: 20070912
  Receipt Date: 20070912
  Transmission Date: 20080115
  Serious: Yes (Other)
  Sender: FDA-Public Use
  Company Number: CA-BOEHRINGER INGELHEIM PHARMACEUTICALS, INC.-2002-BP-01087BP

PATIENT
  Sex: Male

DRUGS (4)
  1. TELMISARTAN [Suspect]
     Indication: CARDIOVASCULAR DISORDER
     Route: 048
     Dates: end: 20020216
  2. TELMISARTAN [Suspect]
     Indication: CEREBROVASCULAR ACCIDENT PROPHYLAXIS
  3. RAMIPRIL [Suspect]
     Indication: CARDIOVASCULAR DISORDER
     Route: 048
     Dates: end: 20020216
  4. RAMIPRIL [Suspect]
     Indication: CEREBROVASCULAR ACCIDENT PROPHYLAXIS

REACTIONS (1)
  - SYNCOPE [None]
